FAERS Safety Report 9079817 (Version 1)
Quarter: 2013Q1

REPORT INFORMATION
  Report Type: Spontaneous
  Country: FR (occurrence: FR)
  Receive Date: 20130215
  Receipt Date: 20130215
  Transmission Date: 20140127
  Serious: Yes (Other)
  Sender: FDA-Public Use
  Company Number: FR-GLAXOSMITHKLINE-B0867102A

PATIENT
  Age: 69 Year
  Sex: Male

DRUGS (7)
  1. ZOPHREN [Suspect]
     Indication: PROPHYLAXIS OF NAUSEA AND VOMITING
     Route: 042
     Dates: start: 20121107, end: 20130102
  2. GEMCITABINE [Suspect]
     Indication: BLADDER CANCER
     Dosage: 1634MG CYCLIC
     Route: 042
     Dates: start: 20121107, end: 20130102
  3. CARBOPLATINE [Suspect]
     Indication: BLADDER CANCER
     Dosage: 350MG CYCLIC
     Route: 042
     Dates: start: 20121107, end: 20130102
  4. KARDEGIC [Concomitant]
  5. TAREG [Concomitant]
  6. SOTALOL [Concomitant]
  7. PRAVASTATINE [Concomitant]

REACTIONS (2)
  - Transient ischaemic attack [Recovered/Resolved with Sequelae]
  - Amaurosis [Recovered/Resolved]
